FAERS Safety Report 5396056-2 (Version None)
Quarter: 2007Q3

REPORT INFORMATION
  Report Type: 
  Country: None (occurrence: None)
  Receive Date: 20070724
  Receipt Date: 20070717
  Transmission Date: 20080115
  Serious: Yes (Other)
  Sender: FDA-Public Use
  Company Number: US-PFIZER INC-2007042887

PATIENT
  Sex: Male
  Weight: 94 kg

DRUGS (3)
  1. VIAGRA [Suspect]
     Indication: ERECTILE DYSFUNCTION
  2. MULTIVITAMIN [Concomitant]
  3. TYLENOL (CAPLET) [Concomitant]

REACTIONS (3)
  - DRUG INEFFECTIVE [None]
  - PENIS DEVIATION [None]
  - PENIS DISORDER [None]
